FAERS Safety Report 8581535-7 (Version None)
Quarter: 2012Q3

REPORT INFORMATION
  Report Type: 
  Country: None (occurrence: None)
  Receive Date: 20120809
  Receipt Date: 20120802
  Transmission Date: 20120928
  Serious: No
  Sender: FDA-Public Use
  Company Number: US-B.I. PHARMACEUTICALS,INC./RIDGEFIELD-2012-BP-17395BP

PATIENT
  Sex: Male

DRUGS (1)
  1. SPIRIVA [Suspect]
     Indication: EMPHYSEMA
     Route: 055

REACTIONS (3)
  - ASTHENIA [None]
  - CHEST DISCOMFORT [None]
  - MALAISE [None]
